FAERS Safety Report 11544267 (Version 1)
Quarter: 2015Q3

REPORT INFORMATION
  Report Type: Spontaneous
  Country: US (occurrence: None)
  Receive Date: 20150923
  Receipt Date: 20150923
  Transmission Date: 20151125
  Serious: Yes (Disabling)
  Sender: FDA-Public Use
  Company Number: None

PATIENT
  Age: 63 Year
  Sex: Female
  Weight: 54.89 kg

DRUGS (9)
  1. PRILOSEC [Concomitant]
     Active Substance: OMEPRAZOLE MAGNESIUM
  2. TUMERIC [Concomitant]
     Active Substance: TURMERIC
  3. PREDNISONE. [Concomitant]
     Active Substance: PREDNISONE
  4. D3 [Concomitant]
     Active Substance: 25-HYDROXYCHOLECALCIFEROL, 5-TRANS-
  5. OTEZLA [Suspect]
     Active Substance: APREMILAST
     Indication: ANKYLOSING SPONDYLITIS
     Dosage: STARTER PACK
     Route: 048
     Dates: start: 20150810, end: 20150828
  6. LICINOPRIL [Concomitant]
  7. VITAMIN B12 [Concomitant]
     Active Substance: CYANOCOBALAMIN
  8. OTEZLA [Suspect]
     Active Substance: APREMILAST
     Indication: PSORIATIC ARTHROPATHY
     Dosage: STARTER PACK
     Route: 048
     Dates: start: 20150810, end: 20150828
  9. CELEBREX [Concomitant]
     Active Substance: CELECOXIB

REACTIONS (7)
  - Migraine [None]
  - Depression [None]
  - Aura [None]
  - Nausea [None]
  - Suicidal ideation [None]
  - Influenza like illness [None]
  - Photopsia [None]

NARRATIVE: CASE EVENT DATE: 20150825
